FAERS Safety Report 10907358 (Version 3)
Quarter: 2016Q4

REPORT INFORMATION
  Report Type: Spontaneous
  Country: US (occurrence: US)
  Receive Date: 20150312
  Receipt Date: 20161014
  Transmission Date: 20170206
  Serious: Yes (Hospitalization, Other)
  Sender: FDA-Public Use
  Company Number: US-PFIZER INC-2015082914

PATIENT
  Age: 69 Year
  Sex: Female
  Weight: 99 kg

DRUGS (7)
  1. DEPO-MEDROL [Suspect]
     Active Substance: METHYLPREDNISOLONE ACETATE
     Dosage: UNK
     Route: 014
  2. DEPO-MEDROL [Suspect]
     Active Substance: METHYLPREDNISOLONE ACETATE
     Dosage: UNK
     Route: 014
  3. DEPO-MEDROL [Suspect]
     Active Substance: METHYLPREDNISOLONE ACETATE
     Indication: OSTEOARTHRITIS
     Dosage: 1 CC
     Route: 014
     Dates: start: 20150217
  4. CELEBREX [Concomitant]
     Active Substance: CELECOXIB
     Dosage: 400 MG 2 CAPSULES
  5. LIDOCAINE HCL [Suspect]
     Active Substance: LIDOCAINE HYDROCHLORIDE
     Indication: OSTEOARTHRITIS
     Dosage: 6 CC OF 1%
     Route: 014
     Dates: start: 20150217
  6. DEPO-MEDROL [Suspect]
     Active Substance: METHYLPREDNISOLONE ACETATE
     Dosage: UNK
     Route: 014
  7. DEPO-MEDROL [Suspect]
     Active Substance: METHYLPREDNISOLONE ACETATE
     Dosage: UNK
     Route: 014

REACTIONS (3)
  - Arthritis bacterial [Recovering/Resolving]
  - Cellulitis [Recovering/Resolving]
  - Staphylococcal infection [Recovering/Resolving]

NARRATIVE: CASE EVENT DATE: 201502
